FAERS Safety Report 9626413 (Version 2)
Quarter: 2013Q4

REPORT INFORMATION
  Report Type: Report from Study
  Country: JP (occurrence: JP)
  Receive Date: 20131016
  Receipt Date: 20131016
  Transmission Date: 20140711
  Serious: Yes (Hospitalization)
  Sender: FDA-Public Use
  Company Number: JP-TAKEDA-TCI2013A04418

PATIENT
  Age: 78 Year
  Sex: Male
  Weight: 77 kg

DRUGS (13)
  1. LANSOPRAZOLE [Suspect]
     Indication: PROPHYLAXIS AGAINST GASTROINTESTINAL ULCER
     Dosage: 15 MG, QD
     Route: 048
     Dates: start: 20130518
  2. LANSOPRAZOLE [Suspect]
     Indication: PROPHYLAXIS AGAINST GASTROINTESTINAL ULCER
     Dosage: 15 MG, QD
     Route: 048
     Dates: start: 20121208, end: 20130517
  3. CELECOX [Concomitant]
     Indication: OSTEOARTHRITIS
     Route: 048
     Dates: start: 20110131
  4. CELECOX [Concomitant]
     Indication: BACK PAIN
  5. WARFARIN [Concomitant]
     Indication: ATRIAL FIBRILLATION
     Route: 048
  6. WARFARIN [Concomitant]
     Route: 048
  7. WARFARIN [Concomitant]
     Route: 048
  8. MAINTATE [Concomitant]
     Indication: HYPERTENSION
     Route: 048
  9. MAINTATE [Concomitant]
     Route: 048
  10. MAINTATE [Concomitant]
     Route: 048
  11. ATORVASTATIN [Concomitant]
     Indication: BLOOD CHOLESTEROL INCREASED
     Route: 048
  12. ATORVASTATIN [Concomitant]
     Indication: BLOOD CHOLESTEROL INCREASED
     Route: 048
  13. ATORVASTATIN [Concomitant]
     Route: 048

REACTIONS (1)
  - Intervertebral disc protrusion [Recovering/Resolving]
